FAERS Safety Report 4355876-3 (Version None)
Quarter: 2004Q2

REPORT INFORMATION
  Report Type: 
  Country: None (occurrence: None)
  Receive Date: 20040507
  Receipt Date: 20040507
  Transmission Date: 20050107
  Serious: Yes (Life-Threatening, Hospitalization)
  Sender: FDA-Public Use
  Company Number: None

PATIENT
  Age: 65 Year
  Sex: Male

DRUGS (5)
  1. COTRIMOXAZOLE 16/80 MG [Suspect]
     Indication: STENOTROPHOMONAS INFECTION
     Dosage: 350 MG Q12 HOURS IV
     Route: 042
     Dates: start: 20040303, end: 20040305
  2. HEPARIN [Suspect]
     Dosage: IV
     Route: 042
     Dates: start: 20040307, end: 20040308
  3. LEPIRUDIN [Concomitant]
  4. ENOXAPARIN SODIUM [Concomitant]
  5. AMBISOME [Concomitant]

REACTIONS (1)
  - PANCYTOPENIA [None]
